FAERS Safety Report 7395859-2 (Version None)
Quarter: 2011Q2

REPORT INFORMATION
  Report Type: 
  Country: None (occurrence: None)
  Receive Date: 20110405
  Receipt Date: 20110325
  Transmission Date: 20111010
  Serious: No
  Sender: FDA-Public Use
  Company Number: US-BAYER-2011-022550

PATIENT
  Sex: Male

DRUGS (2)
  1. UNCODEABLE ^UNCLASSIFIABLE^ [Suspect]
     Indication: MULTIPLE SCLEROSIS
     Dosage: UNK
  2. ALEVE (CAPLET) [Suspect]
     Indication: PRODUCT USED FOR UNKNOWN INDICATION
     Dosage: 1 DF, QD
     Route: 048
     Dates: end: 20110301

REACTIONS (1)
  - VOMITING [None]
